FAERS Safety Report 9281342 (Version 1)
Quarter: 2013Q2

REPORT INFORMATION
  Report Type: Spontaneous
  Country: FR (occurrence: FR)
  Receive Date: 20130509
  Receipt Date: 20130509
  Transmission Date: 20140414
  Serious: Yes (Hospitalization, Other)
  Sender: FDA-Public Use
  Company Number: FR-ELI_LILLY_AND_COMPANY-FR201304008313

PATIENT
  Age: 40 Year
  Sex: Male

DRUGS (8)
  1. ZYPREXA [Suspect]
     Dosage: 10 MG, QD
     Route: 048
  2. PRAZEPAM [Concomitant]
     Dosage: 40 MG, QD
  3. PARACETAMOL [Concomitant]
     Dosage: 1 G, TID
  4. ZOPLICONE [Concomitant]
     Dosage: 7.5 MG, QD
  5. LOXAPAC [Concomitant]
     Dosage: 150 GTT, TID
     Dates: start: 20130218
  6. THERALENE [Concomitant]
     Dosage: 50 GTT, QD
  7. LEPTICUR [Concomitant]
     Dosage: 20 MG, QD
  8. ATARAX [Concomitant]
     Dosage: 1 G, TID

REACTIONS (6)
  - Faecaloma [Recovered/Resolved]
  - Urinary tract infection [Unknown]
  - Nausea [Unknown]
  - Pallor [Unknown]
  - Asthenia [Unknown]
  - Somnolence [Unknown]
